FAERS Safety Report 13047130 (Version 7)
Quarter: 2017Q1

REPORT INFORMATION
  Report Type: Report from Study
  Country: ES (occurrence: ES)
  Receive Date: 20161220
  Receipt Date: 20170302
  Transmission Date: 20170428
  Serious: Yes (Death, Life-Threatening, Hospitalization)
  Sender: FDA-Public Use
  Company Number: ES-BAYER-2016-238484

PATIENT
  Age: 76 Year
  Sex: Male
  Weight: 62.8 kg

DRUGS (9)
  1. ENALAPRIL [Concomitant]
     Active Substance: ENALAPRIL
     Indication: HYPERTENSION
     Dosage: 5 MG, BID
     Route: 048
     Dates: start: 20161207, end: 20161211
  2. MEROPENEM. [Concomitant]
     Active Substance: MEROPENEM
     Indication: LUNG INFECTION
     Dosage: DAILY DOSE 3 G
     Route: 042
     Dates: start: 20161210, end: 20161215
  3. BEMIPARIN [Concomitant]
     Indication: PROPHYLAXIS
     Dosage: DAILY DOSE 3500 IU
     Route: 058
     Dates: start: 20161210, end: 20161214
  4. REGORAFENIB [Suspect]
     Active Substance: REGORAFENIB
     Indication: COLORECTAL CANCER METASTATIC
     Dosage: 160 MG ONE WEEK ON/ONE WEEK OFF THE FIRST CYCLE
     Route: 048
     Dates: start: 20161129, end: 20161206
  5. OMEPRAZOL [Concomitant]
     Active Substance: OMEPRAZOLE
     Indication: PROPHYLAXIS
     Dosage: UNK
     Route: 048
     Dates: start: 20161207, end: 20161214
  6. CAPTOPRIL. [Concomitant]
     Active Substance: CAPTOPRIL
     Indication: HYPERTENSION
     Dosage: DAILY DOSE 12.5 MG
     Route: 048
     Dates: start: 20161212, end: 20161214
  7. INSULIN [Concomitant]
     Active Substance: INSULIN NOS
     Indication: DIABETES MELLITUS
     Dosage: DAILY DOSE 10 IU
     Dates: start: 20161213, end: 20161214
  8. DIAZEPAM. [Concomitant]
     Active Substance: DIAZEPAM
     Indication: ANXIETY
     Dosage: DAILY DOSE 5 MG
     Dates: start: 2016, end: 20161208
  9. ESCITALOPRAM [Concomitant]
     Active Substance: ESCITALOPRAM OXALATE
     Indication: ANXIETY
     Dosage: DAILY DOSE 10 MG
     Dates: start: 2016, end: 20161208

REACTIONS (9)
  - Encephalopathy [Fatal]
  - Weight decreased [None]
  - Hepatic failure [Fatal]
  - Asthenia [Not Recovered/Not Resolved]
  - Tachycardia [Fatal]
  - Cardiac failure [Fatal]
  - Dyspnoea exertional [Fatal]
  - Dyspnoea at rest [Fatal]
  - Fatigue [Fatal]

NARRATIVE: CASE EVENT DATE: 20161209
